FAERS Safety Report 7258960-X (Version None)
Quarter: 2011Q1

REPORT INFORMATION
  Report Type: 
  Country: None (occurrence: None)
  Receive Date: 20110129
  Receipt Date: 20100622
  Transmission Date: 20110831
  Serious: No
  Sender: FDA-Public Use
  Company Number: US-ABBOTT-10P-163-0652992-00

PATIENT
  Sex: Female

DRUGS (3)
  1. SULFASALAZINE [Concomitant]
     Indication: CROHN'S DISEASE
  2. PRE-NATAL VITAMINS [Concomitant]
     Indication: CROHN'S DISEASE
  3. HUMIRA [Suspect]
     Indication: CROHN'S DISEASE
     Dates: start: 20100101

REACTIONS (1)
  - ALOPECIA [None]
